FAERS Safety Report 5734294-7 (Version None)
Quarter: 2008Q2

REPORT INFORMATION
  Report Type: 
  Country: None (occurrence: None)
  Receive Date: 20080512
  Receipt Date: 20080502
  Transmission Date: 20081010
  Serious: Yes (Hospitalization)
  Sender: FDA-Public Use
  Company Number: US-JNJFOC-20080500594

PATIENT

DRUGS (1)
  1. ASPIRIN [Suspect]
     Indication: DRUG HYPERSENSITIVITY
     Route: 048

REACTIONS (4)
  - ABDOMINAL PAIN [None]
  - BRONCHOSPASM [None]
  - NAUSEA [None]
  - VOMITING [None]
